FAERS Safety Report 6818395-8 (Version None)
Quarter: 2010Q3

REPORT INFORMATION
  Report Type: 
  Country: None (occurrence: None)
  Receive Date: 20100706
  Receipt Date: 20080212
  Transmission Date: 20110219
  Serious: No
  Sender: FDA-Public Use
  Company Number: US-PFIZER INC-2008014038

PATIENT

DRUGS (1)
  1. ZMAX [Suspect]
     Indication: CHLAMYDIAL INFECTION
     Dosage: ONCE
     Dates: start: 20080201, end: 20080201

REACTIONS (1)
  - VOMITING [None]
